FAERS Safety Report 6475636-7 (Version None)
Quarter: 2009Q4

REPORT INFORMATION
  Report Type: 
  Country: None (occurrence: None)
  Receive Date: 20091204
  Receipt Date: 20091125
  Transmission Date: 20100525
  Serious: Yes (Hospitalization, Other)
  Sender: FDA-Public Use
  Company Number: US-PFIZER INC-2009293528

PATIENT
  Sex: Female
  Weight: 58.05 kg

DRUGS (5)
  1. LIPITOR [Suspect]
     Indication: BLOOD CHOLESTEROL INCREASED
     Dosage: UNK
     Route: 048
  2. ATENOLOL [Concomitant]
  3. COMBIVENT [Concomitant]
     Indication: EMPHYSEMA
  4. DOXEPIN HYDROCHLORIDE [Concomitant]
  5. XANAX [Concomitant]

REACTIONS (6)
  - CYSTITIS [None]
  - DIVERTICULUM [None]
  - HEART RATE IRREGULAR [None]
  - INTENTIONAL DRUG MISUSE [None]
  - LUNG NEOPLASM [None]
  - MEDICAL DEVICE REMOVAL [None]
